FAERS Safety Report 10216637 (Version 2)
Quarter: 2014Q2

REPORT INFORMATION
  Report Type: Spontaneous
  Country: US (occurrence: US)
  Receive Date: 20140604
  Receipt Date: 20140609
  Transmission Date: 20141212
  Serious: No
  Sender: FDA-Public Use
  Company Number: US-PFIZER INC-2014152690

PATIENT
  Age: 64 Year
  Sex: Male
  Weight: 86.2 kg

DRUGS (3)
  1. LYRICA [Suspect]
     Indication: FIBROMYALGIA
     Dosage: 300 MG, 2X/DAY
     Dates: start: 200705
  2. LYRICA [Suspect]
     Dosage: UNK
  3. TRAZODONE [Concomitant]
     Indication: SLEEP DISORDER
     Dosage: 150 MG, DAILY

REACTIONS (4)
  - Feeling abnormal [Unknown]
  - Malaise [Unknown]
  - General physical health deterioration [Unknown]
  - Drug ineffective [Unknown]
